FAERS Safety Report 12835613 (Version 1)
Quarter: 2016Q4

REPORT INFORMATION
  Report Type: Report from Study
  Country: US (occurrence: US)
  Receive Date: 20161011
  Receipt Date: 20161011
  Transmission Date: 20170207
  Serious: Yes (Death)
  Sender: FDA-Public Use
  Company Number: US-ASTRAZENECA-2016SE88369

PATIENT
  Age: 8813 Day
  Sex: Female

DRUGS (2)
  1. LYNPARZA [Suspect]
     Active Substance: OLAPARIB
     Indication: SOFT TISSUE SARCOMA
     Route: 048
     Dates: start: 20160805, end: 20160928
  2. LYNPARZA [Suspect]
     Active Substance: OLAPARIB
     Indication: SOFT TISSUE SARCOMA
     Route: 048
     Dates: start: 20160804

REACTIONS (5)
  - Product use issue [Unknown]
  - Hypoaesthesia oral [Not Recovered/Not Resolved]
  - Stomatitis [Recovered/Resolved]
  - Off label use [Unknown]
  - Death [Fatal]

NARRATIVE: CASE EVENT DATE: 20160928
